FAERS Safety Report 15624781 (Version 3)
Quarter: 2018Q4

REPORT INFORMATION
  Report Type: Spontaneous
  Country: DE (occurrence: DE)
  Receive Date: 20181116
  Receipt Date: 20181203
  Transmission Date: 20190205
  Serious: Yes (Life-Threatening)
  Sender: FDA-Public Use
  Company Number: PHHY2018DE154575

PATIENT
  Age: 58 Year
  Sex: Male

DRUGS (9)
  1. CANDESARTAN. [Concomitant]
     Active Substance: CANDESARTAN
     Indication: HYPERTENSION
     Dosage: UNK
     Route: 065
  2. DARUNAVIR [Concomitant]
     Active Substance: DARUNAVIR
     Indication: ACQUIRED IMMUNODEFICIENCY SYNDROME
  3. TRIAMCINOLONE [Suspect]
     Active Substance: TRIAMCINOLONE
     Indication: BACK PAIN
     Dosage: 30 MG, UNK
     Route: 065
  4. RITONAVIR. [Interacting]
     Active Substance: RITONAVIR
     Indication: HIV INFECTION
     Dosage: 100 MG, QD
     Route: 048
  5. BISOPROLOL [Concomitant]
     Active Substance: BISOPROLOL
     Indication: HYPERTENSION
     Dosage: UNK
     Route: 065
  6. DARUNAVIR [Concomitant]
     Active Substance: DARUNAVIR
     Indication: HIV INFECTION
     Dosage: 800 MG, QD
     Route: 048
  7. FLUVASTATIN [Concomitant]
     Active Substance: FLUVASTATIN SODIUM
     Indication: PRODUCT USED FOR UNKNOWN INDICATION
     Dosage: UNK
     Route: 065
  8. METFORMIN [Concomitant]
     Active Substance: METFORMIN HYDROCHLORIDE
     Indication: TYPE 2 DIABETES MELLITUS
     Dosage: 1000 MG, BID
     Route: 065
  9. LANSOPRAZOLE. [Concomitant]
     Active Substance: LANSOPRAZOLE
     Indication: PRODUCT USED FOR UNKNOWN INDICATION
     Dosage: UNK
     Route: 065

REACTIONS (6)
  - Muscular weakness [Recovering/Resolving]
  - Nausea [Recovering/Resolving]
  - Fatigue [Recovering/Resolving]
  - Weight decreased [Recovering/Resolving]
  - Adrenal insufficiency [Recovered/Resolved]
  - Drug interaction [Recovered/Resolved]
